FAERS Safety Report 9770556 (Version 1)
Quarter: 2013Q4

REPORT INFORMATION
  Report Type: Spontaneous
  Country: US (occurrence: US)
  Receive Date: 20131218
  Receipt Date: 20131218
  Transmission Date: 20140711
  Serious: No
  Sender: FDA-Public Use
  Company Number: US-BAYER-2013-154938

PATIENT
  Age: 72 Year
  Sex: Female
  Weight: 43.08 kg

DRUGS (3)
  1. ALEVE TABLET [Suspect]
     Indication: PAIN
     Dosage: 1 DF, BID
     Route: 048
     Dates: start: 20131209
  2. LISINOPRIL [Concomitant]
  3. VERAPAMIL [Concomitant]

REACTIONS (1)
  - Drug ineffective [None]
